FAERS Safety Report 14247077 (Version 1)
Quarter: 2017Q4

REPORT INFORMATION
  Report Type: Spontaneous
  Country: FR (occurrence: FR)
  Receive Date: 20171204
  Receipt Date: 20171204
  Transmission Date: 20180321
  Serious: Yes (Hospitalization, Other)
  Sender: FDA-Public Use
  Company Number: FR-BAYER-2017-225847

PATIENT
  Sex: Male

DRUGS (2)
  1. STIVARGA [Suspect]
     Active Substance: REGORAFENIB
     Dosage: 3 DF, QD
     Dates: start: 201611
  2. STIVARGA [Suspect]
     Active Substance: REGORAFENIB
     Dosage: 3 DF DAILY
     Dates: start: 201709

REACTIONS (7)
  - Clonic convulsion [None]
  - Epilepsy [None]
  - Decreased appetite [None]
  - Palmar-plantar erythrodysaesthesia syndrome [None]
  - Central nervous system lesion [None]
  - Brain oedema [None]
  - Malaise [None]

NARRATIVE: CASE EVENT DATE: 201702
